FAERS Safety Report 10631212 (Version 2)
Quarter: 2014Q4

REPORT INFORMATION
  Report Type: Spontaneous
  Country: US (occurrence: US)
  Receive Date: 20141205
  Receipt Date: 20141205
  Transmission Date: 20150529
  Serious: No
  Sender: FDA-Public Use
  Company Number: US-BRISTOL-MYERS SQUIBB COMPANY-21405220

PATIENT
  Age: 66 Year
  Sex: Female
  Weight: 89.34 kg

DRUGS (4)
  1. LANTUS [Concomitant]
     Active Substance: INSULIN GLARGINE
  2. HUMALOG [Concomitant]
     Active Substance: INSULIN LISPRO
  3. BYDUREON [Suspect]
     Active Substance: EXENATIDE
     Indication: TYPE 2 DIABETES MELLITUS
     Dosage: NO OF INJECTION:3
     Route: 058
  4. JANUMET [Concomitant]
     Active Substance: METFORMIN HYDROCHLORIDE\SITAGLIPTIN PHOSPHATE

REACTIONS (8)
  - Injection site pain [Unknown]
  - Injection site mass [Recovering/Resolving]
  - Throat irritation [Unknown]
  - Drug administration error [Unknown]
  - Hunger [Unknown]
  - Injection site nodule [Unknown]
  - Sneezing [Unknown]
  - Product quality issue [Unknown]
